FAERS Safety Report 14169735 (Version 3)
Quarter: 2018Q1

REPORT INFORMATION
  Report Type: Spontaneous
  Country: US (occurrence: US)
  Receive Date: 20171108
  Receipt Date: 20180205
  Transmission Date: 20180508
  Serious: No
  Sender: FDA-Public Use
  Company Number: US-PFIZER INC-2017479997

PATIENT
  Age: 50 Year
  Sex: Female

DRUGS (3)
  1. VITAMIN B12 [Concomitant]
     Active Substance: CYANOCOBALAMIN
     Dosage: UNK
  2. DEPO-ESTRADIOL [Suspect]
     Active Substance: ESTRADIOL CYPIONATE
     Indication: MENOPAUSE
     Dosage: 5 ML, 2X/WEEK (5ML 1/4 CLICK 2 X PER WEEK)
     Dates: start: 20171015, end: 2017
  3. DEPO-ESTRADIOL [Suspect]
     Active Substance: ESTRADIOL CYPIONATE
     Dosage: UNK, WEEKLY
     Route: 030

REACTIONS (5)
  - Dyspnoea [Recovered/Resolved]
  - Blister [Not Recovered/Not Resolved]
  - Palpitations [Recovered/Resolved]
  - Acne [Not Recovered/Not Resolved]
  - Heart rate increased [Unknown]

NARRATIVE: CASE EVENT DATE: 20171015
